FAERS Safety Report 7525934-0 (Version None)
Quarter: 2011Q2

REPORT INFORMATION
  Report Type: 
  Country: None (occurrence: None)
  Receive Date: 20110603
  Receipt Date: 20110603
  Transmission Date: 20111010
  Serious: Yes (Other)
  Sender: FDA-Public Use
  Company Number: None

PATIENT
  Age: 55 Year
  Sex: Female
  Weight: 51.1 kg

DRUGS (14)
  1. NEUPOGEN [Concomitant]
  2. VINCRISTINE [Concomitant]
  3. OMEPRAZOLE [Concomitant]
  4. ETOPOSIDE [Concomitant]
  5. DOXORUBICIN HCL [Concomitant]
  6. CYTOXAN [Concomitant]
  7. BACTRIM [Concomitant]
  8. ZOFRAN [Concomitant]
  9. SENOKOT [Concomitant]
  10. DOXEPIN [Concomitant]
  11. RITUXAN [Suspect]
     Indication: LYMPHOMA
     Dosage: 555 MG IV X 1 Q 3 WEEKS
     Route: 042
     Dates: start: 20100514
  12. RITUXAN [Suspect]
     Indication: LYMPHOMA
     Dosage: 555 MG IV X 1 Q 3 WEEKS
     Route: 042
     Dates: start: 20100604
  13. ATIVAN [Concomitant]
  14. PREDNISONE [Concomitant]

REACTIONS (3)
  - DIZZINESS [None]
  - PALLOR [None]
  - INFUSION RELATED REACTION [None]
